FAERS Safety Report 24129361 (Version 1)
Quarter: 2024Q3

REPORT INFORMATION
  Report Type: Spontaneous
  Country: US (occurrence: US)
  Receive Date: 20240723
  Receipt Date: 20240723
  Transmission Date: 20241017
  Serious: Yes (Hospitalization, Other)
  Sender: LUNDBECK
  Company Number: US-LUNDBECK-DKLU4001977

PATIENT

DRUGS (1)
  1. SABRIL [Suspect]
     Active Substance: VIGABATRIN
     Indication: Generalised tonic-clonic seizure
     Dosage: 1000 003
     Route: 048

REACTIONS (3)
  - Seizure [Not Recovered/Not Resolved]
  - COVID-19 [Not Recovered/Not Resolved]
  - Visual impairment [Not Recovered/Not Resolved]
